FAERS Safety Report 12719887 (Version 2)
Quarter: 2016Q3

REPORT INFORMATION
  Report Type: Spontaneous
  Country: FR (occurrence: FR)
  Receive Date: 20160907
  Receipt Date: 20160928
  Transmission Date: 20161109
  Serious: Yes (Hospitalization)
  Sender: FDA-Public Use
  Company Number: FR-BIOGEN-2016BI00288531

PATIENT
  Age: 65 Year
  Sex: Female

DRUGS (3)
  1. TYSABRI [Suspect]
     Active Substance: NATALIZUMAB
     Indication: MULTIPLE SCLEROSIS
     Route: 065
  2. TEGRETOL [Concomitant]
     Active Substance: CARBAMAZEPINE
     Dosage: SUSTAINED RELEASE
     Route: 065
  3. TEGRETOL [Concomitant]
     Active Substance: CARBAMAZEPINE
     Indication: PRODUCT USED FOR UNKNOWN INDICATION
     Dosage: FOR 4 MONTHS
     Route: 065

REACTIONS (4)
  - Multiple sclerosis relapse [Recovered/Resolved]
  - Hyperthermia [Recovered/Resolved]
  - Normochromic normocytic anaemia [Unknown]
  - Uhthoff^s phenomenon [Recovered/Resolved]

NARRATIVE: CASE EVENT DATE: 20151205
